FAERS Safety Report 13559437 (Version 1)
Quarter: 2017Q2

REPORT INFORMATION
  Report Type: Spontaneous
  Country: US (occurrence: US)
  Receive Date: 20170518
  Receipt Date: 20170518
  Transmission Date: 20170830
  Serious: No
  Sender: FDA-Public Use
  Company Number: US-ASTRAZENECA-2017SE52187

PATIENT
  Sex: Female

DRUGS (1)
  1. BYETTA [Suspect]
     Active Substance: EXENATIDE
     Dosage: TWO TIMES A DAY IN MORNING
     Route: 065

REACTIONS (4)
  - Intentional product misuse [Unknown]
  - Abdominal discomfort [Unknown]
  - Product use issue [Unknown]
  - Blood glucose fluctuation [Unknown]
